FAERS Safety Report 15811058 (Version 1)
Quarter: 2019Q1

REPORT INFORMATION
  Report Type: Spontaneous
  Country: TW (occurrence: TW)
  Receive Date: 20190111
  Receipt Date: 20190111
  Transmission Date: 20190417
  Serious: Yes (Death, Other)
  Sender: FDA-Public Use
  Company Number: TW-ASTELLAS-2019US000574

PATIENT
  Age: 33 Year
  Sex: Female

DRUGS (1)
  1. TACROLIMUS. [Suspect]
     Active Substance: TACROLIMUS
     Indication: LIVER TRANSPLANT
     Dosage: UNK UNK, UNKNOWN FREQ.
     Route: 065

REACTIONS (7)
  - General physical health deterioration [Unknown]
  - Overdose [Unknown]
  - Multiple organ dysfunction syndrome [Unknown]
  - Transplant failure [Fatal]
  - Posterior reversible encephalopathy syndrome [Unknown]
  - Hepatic infarction [Unknown]
  - Toxicity to various agents [Unknown]
